FAERS Safety Report 7065832-2 (Version None)
Quarter: 2010Q4

REPORT INFORMATION
  Report Type: 
  Country: None (occurrence: None)
  Receive Date: 20101027
  Receipt Date: 20101018
  Transmission Date: 20110411
  Serious: Yes (Hospitalization)
  Sender: FDA-Public Use
  Company Number: DE-ABBOTT-10P-062-0663614-00

PATIENT
  Sex: Female
  Weight: 51 kg

DRUGS (13)
  1. HUMIRA [Suspect]
     Indication: CROHN'S DISEASE
     Route: 058
     Dates: start: 20100730
  2. FENTANYL CITRATE [Concomitant]
     Indication: PAIN
     Route: 062
  3. PANTAZOL [Concomitant]
     Indication: PRODUCT USED FOR UNKNOWN INDICATION
  4. AMITRIPTYLINE HCL [Concomitant]
     Indication: PRODUCT USED FOR UNKNOWN INDICATION
  5. UDC [Concomitant]
     Indication: PRODUCT USED FOR UNKNOWN INDICATION
  6. PREDNISOLONE [Concomitant]
     Indication: CROHN'S DISEASE
     Route: 048
  7. LEVOTHYROXINE SODIUM [Concomitant]
     Indication: HYPOTHYROIDISM
     Route: 048
  8. 5-ASA/SULFASALAZIN [Concomitant]
     Indication: PRODUCT USED FOR UNKNOWN INDICATION
  9. BUDESONIDE [Concomitant]
     Indication: CROHN'S DISEASE
     Route: 048
  10. SYSTEMIC STEROIDS [Concomitant]
     Indication: CROHN'S DISEASE
  11. AZATHIOPRIN [Concomitant]
     Indication: CROHN'S DISEASE
     Dosage: 2 - 2.5MG/KG BODY WEIGHT
  12. METHOTREXATE [Concomitant]
     Indication: CROHN'S DISEASE
     Route: 058
  13. REMICADE [Concomitant]
     Indication: PRODUCT USED FOR UNKNOWN INDICATION

REACTIONS (10)
  - BONE PAIN [None]
  - FATIGUE [None]
  - FISTULA [None]
  - GENERAL PHYSICAL HEALTH DETERIORATION [None]
  - HYPERAEMIA [None]
  - NIGHT SWEATS [None]
  - NUTRITIONAL CONDITION ABNORMAL [None]
  - PYREXIA [None]
  - SPLENOMEGALY [None]
  - URINARY TRACT INFECTION [None]
